FAERS Safety Report 24007992 (Version 1)
Quarter: 2024Q2

REPORT INFORMATION
  Report Type: Report from Study
  Country: US (occurrence: US)
  Receive Date: 20240625
  Receipt Date: 20240625
  Transmission Date: 20240716
  Serious: No
  Sender: FDA-Public Use
  Company Number: US-ALXN-A202309109

PATIENT
  Sex: Female

DRUGS (1)
  1. ULTOMIRIS [Suspect]
     Active Substance: RAVULIZUMAB-CWVZ
     Indication: Myasthenia gravis
     Dosage: UNK
     Route: 065

REACTIONS (6)
  - Eyelid ptosis [Unknown]
  - Osteoarthritis [Not Recovered/Not Resolved]
  - Restrictive pulmonary disease [Unknown]
  - Diplopia [Unknown]
  - Dyspepsia [Unknown]
  - Pruritus [Unknown]
